FAERS Safety Report 7585795-0 (Version None)
Quarter: 2011Q3

REPORT INFORMATION
  Report Type: 
  Country: None (occurrence: None)
  Receive Date: 20110701
  Receipt Date: 20110627
  Transmission Date: 20111222
  Serious: Yes (Hospitalization, Other)
  Sender: FDA-Public Use
  Company Number: FR-BRISTOL-MYERS SQUIBB COMPANY-15863517

PATIENT
  Age: 55 Year
  Sex: Female

DRUGS (1)
  1. ORENCIA [Suspect]
     Indication: RHEUMATOID ARTHRITIS
     Dosage: 3/COURSE,LAST COURSE: 12JAN11,INFUSIONAL THERAPY
     Dates: start: 20090101

REACTIONS (4)
  - ACUTE CORONARY SYNDROME [None]
  - CHEST PAIN [None]
  - ARTERIAL STENOSIS [None]
  - WOUND [None]
